FAERS Safety Report 5525219-8 (Version None)
Quarter: 2007Q4

REPORT INFORMATION
  Report Type: 
  Country: None (occurrence: None)
  Receive Date: 20071126
  Receipt Date: 20071119
  Transmission Date: 20080405
  Serious: Yes (Hospitalization, Other)
  Sender: FDA-Public Use
  Company Number: GB-BRISTOL-MYERS SQUIBB COMPANY-13989835

PATIENT
  Age: 85 Year
  Sex: Male

DRUGS (2)
  1. CYCLOPHOSPHAMIDE [Suspect]
     Indication: CHRONIC LYMPHOCYTIC LEUKAEMIA
     Route: 048
  2. IMMUNE GLOBULIN (HUMAN) [Suspect]
     Indication: CHRONIC LYMPHOCYTIC LEUKAEMIA
     Route: 042

REACTIONS (5)
  - CYTOMEGALOVIRUS CHORIORETINITIS [None]
  - IRIS NEOVASCULARISATION [None]
  - PNEUMONIA [None]
  - RETINAL DETACHMENT [None]
  - RETINOPATHY PROLIFERATIVE [None]
